FAERS Safety Report 6344277-4 (Version None)
Quarter: 2009Q3

REPORT INFORMATION
  Report Type: 
  Country: None (occurrence: None)
  Receive Date: 20090908
  Receipt Date: 20090824
  Transmission Date: 20100115
  Serious: Yes (Hospitalization)
  Sender: FDA-Public Use
  Company Number: JP-PFIZER INC-2009261098

PATIENT
  Age: 74 Year

DRUGS (3)
  1. AMLODIPINE BESYLATE [Suspect]
     Dosage: 5 MG, UNK
  2. LEUPLIN [Suspect]
  3. CASODEX [Suspect]

REACTIONS (1)
  - INTERSTITIAL LUNG DISEASE [None]
